FAERS Safety Report 20174470 (Version 3)
Quarter: 2022Q2

REPORT INFORMATION
  Report Type: Report from Study
  Country: DE (occurrence: DE)
  Receive Date: 20211213
  Receipt Date: 20220526
  Transmission Date: 20220721
  Serious: Yes (Hospitalization)
  Sender: FDA-Public Use
  Company Number: DE-BRISTOL-MYERS SQUIBB COMPANY-BMS-2021-132172

PATIENT
  Sex: Male

DRUGS (4)
  1. YERVOY [Suspect]
     Active Substance: IPILIMUMAB
     Indication: Malignant melanoma
     Route: 065
  2. NIVOLUMAB [Suspect]
     Active Substance: NIVOLUMAB
     Indication: Malignant melanoma
     Dosage: 480 MILLIGRAM, Q4WK
     Route: 042
     Dates: start: 20200603, end: 20210512
  3. NIVOLUMAB [Suspect]
     Active Substance: NIVOLUMAB
     Route: 042
     Dates: start: 20200613
  4. CICLOPIROX [CICLOPIROX OLAMINE] [Concomitant]
     Indication: Product used for unknown indication
     Route: 065

REACTIONS (1)
  - Body tinea [Recovering/Resolving]

NARRATIVE: CASE EVENT DATE: 20211130
